FAERS Safety Report 8362258 (Version 4)
Quarter: 2012Q4

REPORT INFORMATION
  Report Type: 
  Country: US (occurrence: US)
  Receive Date: 20120130
  Receipt Date: 20121026
  Transmission Date: 20130627
  Serious: Yes (Hospitalization)
  Sender: FDA-Public Use
  Company Number: US-BAYER-2012-008720

PATIENT
  Age: 28 Year
  Sex: Female
  Weight: 72.56 kg

DRUGS (7)
  1. YAZ [Suspect]
     Indication: CONTRACEPTION
     Dosage: UNK
     Dates: start: 200810, end: 200903
  2. YAZ [Suspect]
     Indication: CONTRACEPTION
     Dosage: UNK
     Dates: start: 200905, end: 200907
  3. ANTIBIOTICS [Concomitant]
  4. ALBUTEROL [Concomitant]
  5. CLINDAMYCIN [Concomitant]
  6. ENDOCET [Concomitant]
  7. PROMETHAZINE [Concomitant]

REACTIONS (7)
  - Myocardial infarction [Recovered/Resolved]
  - Coronary artery embolism [None]
  - Chest pain [None]
  - Hypoaesthesia [None]
  - Nausea [None]
  - Pain [None]
  - Pain [None]
